FAERS Safety Report 12660350 (Version 1)
Quarter: 2016Q3

REPORT INFORMATION
  Report Type: Report from Study
  Country: CA (occurrence: CA)
  Receive Date: 20160817
  Receipt Date: 20160817
  Transmission Date: 20161109
  Serious: Yes (Other)
  Sender: FDA-Public Use
  Company Number: CA-JNJFOC-20160809818

PATIENT
  Age: 32 Year
  Sex: Female
  Weight: 81 kg

DRUGS (2)
  1. REMICADE [Suspect]
     Active Substance: INFLIXIMAB
     Indication: CROHN^S DISEASE
     Route: 042
     Dates: start: 20160709
  2. REMICADE [Suspect]
     Active Substance: INFLIXIMAB
     Indication: CROHN^S DISEASE
     Dosage: 800 MG
     Route: 042
     Dates: start: 20140521

REACTIONS (2)
  - Abdominal pain [Not Recovered/Not Resolved]
  - Mastitis [Recovered/Resolved]

NARRATIVE: CASE EVENT DATE: 20160707
